FAERS Safety Report 16993506 (Version 3)
Quarter: 2022Q1

REPORT INFORMATION
  Report Type: Spontaneous
  Country: NL (occurrence: NL)
  Receive Date: 20191105
  Receipt Date: 20220308
  Transmission Date: 20220423
  Serious: Yes (Other)
  Sender: FDA-Public Use
  Company Number: None

PATIENT
  Age: 79 Year
  Sex: Male
  Weight: 70 kg

DRUGS (3)
  1. ACENOCOUMAROL [Interacting]
     Active Substance: ACENOCOUMAROL
     Indication: Product used for unknown indication
     Dosage: 1 MILLIGRAM
     Route: 065
  2. METRONIDAZOLE [Interacting]
     Active Substance: METRONIDAZOLE
     Indication: Skin infection
     Dosage: 1 DOSAGE FORM, 3 TIMES A DAY (10 MILLIGRAM/GRAM, 3 TIMES A DAY)
     Route: 003
     Dates: start: 20180313
  3. METRONIDAZOLE [Interacting]
     Active Substance: METRONIDAZOLE
     Dosage: 1 DOSAGE FORM, TWO TIMES A DAY
     Route: 065
     Dates: start: 20180313

REACTIONS (2)
  - International normalised ratio increased [Unknown]
  - Drug interaction [Unknown]

NARRATIVE: CASE EVENT DATE: 20180417
